FAERS Safety Report 7630122-3 (Version None)
Quarter: 2011Q3

REPORT INFORMATION
  Report Type: 
  Country: None (occurrence: None)
  Receive Date: 20110722
  Receipt Date: 20110714
  Transmission Date: 20111222
  Serious: Yes (Other)
  Sender: FDA-Public Use
  Company Number: US-PURDUE-USA-2010-0049116

PATIENT
  Sex: Male

DRUGS (1)
  1. OXYCONTIN [Suspect]
     Indication: PAIN
     Dosage: 160 MG, DAILY

REACTIONS (5)
  - STERNAL FRACTURE [None]
  - PAIN [None]
  - DIZZINESS [None]
  - ROAD TRAFFIC ACCIDENT [None]
  - ACTIVITIES OF DAILY LIVING IMPAIRED [None]
